FAERS Safety Report 9725978 (Version 4)
Quarter: 2014Q1

REPORT INFORMATION
  Report Type: Spontaneous
  Country: JP (occurrence: JP)
  Receive Date: 20131203
  Receipt Date: 20140110
  Transmission Date: 20141002
  Serious: Yes (Death, Life-Threatening)
  Sender: FDA-Public Use
  Company Number: JP-JNJFOC-20131200201

PATIENT
  Age: 87 Year
  Sex: Female

DRUGS (11)
  1. FINIBAX [Suspect]
     Indication: PSEUDOMONAS INFECTION
     Route: 041
     Dates: start: 20131122, end: 20131125
  2. BUP-4 [Concomitant]
     Route: 065
     Dates: start: 20121220, end: 20131125
  3. WARFARIN POTASSIUM [Concomitant]
     Indication: CEREBRAL INFARCTION
     Route: 048
     Dates: start: 20121220, end: 20131125
  4. VANCOMYCIN [Concomitant]
     Indication: PSEUDOMONAS INFECTION
     Route: 041
     Dates: start: 20131122, end: 20131125
  5. VITAMIN D3 [Concomitant]
     Indication: PRODUCT USED FOR UNKNOWN INDICATION
     Route: 065
  6. AMLODIPINE [Concomitant]
     Indication: PRODUCT USED FOR UNKNOWN INDICATION
     Route: 065
  7. BLOPRESS [Concomitant]
     Indication: PRODUCT USED FOR UNKNOWN INDICATION
     Route: 065
  8. SPIRONOLACTONE [Concomitant]
     Indication: PRODUCT USED FOR UNKNOWN INDICATION
     Route: 065
     Dates: start: 20130105, end: 20131125
  9. TAKEPRON [Concomitant]
     Indication: PRODUCT USED FOR UNKNOWN INDICATION
     Route: 065
  10. TIAPRIM [Concomitant]
     Indication: PRODUCT USED FOR UNKNOWN INDICATION
     Route: 048
     Dates: start: 20121220, end: 20131125
  11. TETRAMIDE [Concomitant]
     Route: 065
     Dates: start: 20121220, end: 20131125

REACTIONS (4)
  - Pneumonia aspiration [Fatal]
  - Interstitial lung disease [Recovering/Resolving]
  - Renal disorder [Not Recovered/Not Resolved]
  - Metabolic acidosis [Unknown]
